FAERS Safety Report 6284618-X (Version None)
Quarter: 2009Q3

REPORT INFORMATION
  Report Type: 
  Country: None (occurrence: None)
  Receive Date: 20090723
  Receipt Date: 20090714
  Transmission Date: 20100115
  Serious: Yes (Hospitalization)
  Sender: FDA-Public Use
  Company Number: 2009-02842

PATIENT
  Age: 80 Year
  Sex: Female
  Weight: 67.3 kg

DRUGS (3)
  1. VELCADE [Suspect]
     Indication: MULTIPLE MYELOMA
     Dosage: 1 MG/M2,  INTRAVENOUS
     Route: 042
     Dates: start: 20090330
  2. MELPHALAN HYDROCHLORIDE [Suspect]
     Indication: MULTIPLE MYELOMA
     Dosage: 6.75 MG/M2, ORAL
     Route: 048
     Dates: start: 20090330
  3. PREDNISONE [Suspect]
     Indication: MULTIPLE MYELOMA
     Dosage: 60 MG/M2, ORAL
     Route: 048
     Dates: start: 20090330

REACTIONS (6)
  - DIZZINESS [None]
  - FACE INJURY [None]
  - FALL [None]
  - LOSS OF CONSCIOUSNESS [None]
  - SYNCOPE [None]
  - THROMBOCYTOPENIA [None]
